FAERS Safety Report 23370787 (Version 2)
Quarter: 2024Q1

REPORT INFORMATION
  Report Type: Spontaneous
  Country: US (occurrence: US)
  Receive Date: 20240105
  Receipt Date: 20240116
  Transmission Date: 20240410
  Serious: No
  Sender: FDA-Public Use
  Company Number: US-SA-SAC20240102000495

PATIENT
  Age: 15 Year
  Sex: Male
  Weight: 63.492 kg

DRUGS (1)
  1. DUPIXENT [Suspect]
     Active Substance: DUPILUMAB
     Indication: Dermatitis atopic
     Dosage: 300 MG, QOW
     Route: 058
     Dates: start: 202009

REACTIONS (7)
  - Illness [Unknown]
  - Lip haemorrhage [Unknown]
  - Tonsillitis [Recovering/Resolving]
  - Fatigue [Unknown]
  - Ocular hyperaemia [Recovering/Resolving]
  - Nasopharyngitis [Recovering/Resolving]
  - Conjunctivitis [Unknown]
